FAERS Safety Report 7943535-7 (Version None)
Quarter: 2011Q4

REPORT INFORMATION
  Report Type: 
  Country: None (occurrence: None)
  Receive Date: 20111128
  Receipt Date: 20111118
  Transmission Date: 20120403
  Serious: Yes (Hospitalization)
  Sender: FDA-Public Use
  Company Number: PHHY2011ES102808

PATIENT
  Age: 58 Year
  Sex: Male

DRUGS (4)
  1. EZETIMIBE [Suspect]
     Dosage: UNK UKN, UNK
     Dates: start: 20100101
  2. METFORMIN HCL [Suspect]
     Dosage: UNK UKN, UNK
     Dates: start: 20100101
  3. DOXAZOSIN MESYLATE [Suspect]
     Dosage: UNK UKN, UNK
     Dates: start: 20100101
  4. AMLODIPINE [Suspect]
     Dosage: UNK UKN, UNK
     Dates: start: 20100101

REACTIONS (1)
  - LIVER INJURY [None]
